FAERS Safety Report 10371549 (Version 7)
Quarter: 2016Q1

REPORT INFORMATION
  Report Type: Report from Study
  Country: US (occurrence: US)
  Receive Date: 20140808
  Receipt Date: 20160129
  Transmission Date: 20160525
  Serious: Yes (Death, Other)
  Sender: FDA-Public Use
  Company Number: US-SA-2014SA104488

PATIENT
  Age: 80 Year
  Sex: Male

DRUGS (1)
  1. AUBAGIO [Suspect]
     Active Substance: TERIFLUNOMIDE
     Indication: MULTIPLE SCLEROSIS
     Route: 048
     Dates: start: 20140711

REACTIONS (10)
  - Death [Fatal]
  - Asthenia [Unknown]
  - Haemorrhage urinary tract [Unknown]
  - Memory impairment [Unknown]
  - Abasia [Unknown]
  - Bladder cancer [Unknown]
  - Depression [Unknown]
  - Weight decreased [Unknown]
  - Pharyngeal disorder [Unknown]
  - Vomiting [Unknown]

NARRATIVE: CASE EVENT DATE: 20151108
